FAERS Safety Report 7582868-3 (Version None)
Quarter: 2011Q2

REPORT INFORMATION
  Report Type: 
  Country: None (occurrence: None)
  Receive Date: 20110630
  Receipt Date: 20110616
  Transmission Date: 20111010
  Serious: Yes (Other)
  Sender: FDA-Public Use
  Company Number: JP-MYLANLABS-2011S1012600

PATIENT
  Sex: Female

DRUGS (2)
  1. CARBOPLATIN [Suspect]
     Indication: OVARIAN CANCER
     Route: 041
     Dates: end: 20110601
  2. TAXOL [Suspect]
     Indication: OVARIAN CANCER
     Route: 041
     Dates: end: 20110601

REACTIONS (1)
  - INTERSTITIAL LUNG DISEASE [None]
